FAERS Safety Report 23894473 (Version 1)
Quarter: 2024Q2

REPORT INFORMATION
  Report Type: Spontaneous
  Country: US (occurrence: None)
  Receive Date: 20240524
  Receipt Date: 20240524
  Transmission Date: 20240716
  Serious: No
  Sender: FDA-Public Use
  Company Number: US-ROCHE-3353481

PATIENT
  Sex: Female

DRUGS (7)
  1. OCREVUS [Suspect]
     Active Substance: OCRELIZUMAB
     Indication: Relapsing-remitting multiple sclerosis
     Route: 065
     Dates: start: 201712, end: 20230516
  2. VITAMIN C [Concomitant]
     Active Substance: ASCORBIC ACID
  3. CYANOCOBALAMIN [Concomitant]
     Active Substance: CYANOCOBALAMIN
  4. METAXALONE [Concomitant]
     Active Substance: METAXALONE
  5. NALTREXONE [Concomitant]
     Active Substance: NALTREXONE
  6. TIZANIDINE [Concomitant]
     Active Substance: TIZANIDINE
  7. ZINC [Concomitant]
     Active Substance: PYRITHIONE ZINC\ZINC\ZINC CHLORIDE

REACTIONS (1)
  - Amenorrhoea [Unknown]
